FAERS Safety Report 7539633-2 (Version None)
Quarter: 2011Q2

REPORT INFORMATION
  Report Type: 
  Country: None (occurrence: None)
  Receive Date: 20110610
  Receipt Date: 20110606
  Transmission Date: 20111010
  Serious: Yes (Other)
  Sender: FDA-Public Use
  Company Number: DE-GENZYME-FLUD-1001217

PATIENT
  Age: 7 Year
  Sex: Female

DRUGS (9)
  1. FLUDARA [Suspect]
     Indication: NEUROBLASTOMA
  2. MELPHALAN HYDROCHLORIDE [Suspect]
     Indication: STEM CELL TRANSPLANT
     Dosage: 140 MG/M2, UNK
     Route: 065
  3. INDIUM (111 IN) [Suspect]
     Indication: STEM CELL TRANSPLANT
     Dosage: 71 +/- 28 MBQ
     Route: 042
  4. INDIUM (111 IN) [Suspect]
     Indication: NEUROBLASTOMA
  5. CYCLOSPORINE [Concomitant]
     Indication: PROPHYLAXIS AGAINST GRAFT VERSUS HOST DISEASE
     Route: 065
  6. FLUDARA [Suspect]
     Indication: STEM CELL TRANSPLANT
     Dosage: 160 MG/M2, UNK
     Route: 065
  7. YTTRIUM (90 Y) [Suspect]
     Indication: STEM CELL TRANSPLANT
     Dosage: UNK
     Route: 042
  8. YTTRIUM (90 Y) [Suspect]
     Indication: NEUROBLASTOMA
  9. MELPHALAN HYDROCHLORIDE [Suspect]
     Indication: NEUROBLASTOMA

REACTIONS (1)
  - NEUROBLASTOMA RECURRENT [None]
